FAERS Safety Report 5162051-1 (Version None)
Quarter: 2006Q4

REPORT INFORMATION
  Report Type: 
  Country: None (occurrence: None)
  Receive Date: 20061121
  Receipt Date: 20061025
  Transmission Date: 20070319
  Serious: No
  Sender: FDA-Public Use
  Company Number: A01200609039

PATIENT
  Age: 78 Year
  Sex: Male

DRUGS (2)
  1. PROCRIN DEPOT - (LEUPRORELIN ACETATE) [Suspect]
     Indication: PROSTATE CANCER
     Dosage: 22.5 MG Q3M
     Route: 058
  2. ACENOCOUMAROL [Concomitant]

REACTIONS (8)
  - ACANTHOMA [None]
  - ERYTHEMA [None]
  - INJECTION SITE ABSCESS STERILE [None]
  - INJECTION SITE NODULE [None]
  - INJECTION SITE ULCER [None]
  - RASH MACULAR [None]
  - RASH PAPULAR [None]
  - SKIN OEDEMA [None]
